FAERS Safety Report 25899365 (Version 1)
Quarter: 2025Q4

REPORT INFORMATION
  Report Type: Other
  Country: AU (occurrence: AU)
  Receive Date: 20251009
  Receipt Date: 20251009
  Transmission Date: 20260117
  Serious: Yes (Life-Threatening, Hospitalization, Other)
  Sender: INNOGENIX, LLC
  Company Number: AU-Innogenix, LLC-2186229

PATIENT
  Age: 24 Year
  Sex: Male

DRUGS (2)
  1. BACLOFEN [Suspect]
     Active Substance: BACLOFEN
     Indication: Product used for unknown indication
  2. ESCITALOPRAM [Suspect]
     Active Substance: ESCITALOPRAM OXALATE

REACTIONS (10)
  - Delirium [Recovered/Resolved]
  - Intentional overdose [Unknown]
  - Drug withdrawal syndrome [Recovered/Resolved]
  - Toxicity to various agents [Recovered/Resolved]
  - Mental status changes [Recovered/Resolved]
  - Hypotension [Recovered/Resolved]
  - Cardiac output decreased [Recovered/Resolved]
  - Bradyarrhythmia [Recovered/Resolved]
  - Agitation [Recovered/Resolved]
  - Cardiac arrest [Recovered/Resolved]
